FAERS Safety Report 6853131-0 (Version None)
Quarter: 2010Q3

REPORT INFORMATION
  Report Type: 
  Country: None (occurrence: None)
  Receive Date: 20100717
  Receipt Date: 20071202
  Transmission Date: 20110219
  Serious: No
  Sender: FDA-Public Use
  Company Number: US-PFIZER INC-2007102301

PATIENT
  Sex: Male
  Weight: 95.454 kg

DRUGS (2)
  1. CHANTIX [Suspect]
     Indication: SMOKING CESSATION THERAPY
     Route: 048
     Dates: start: 20070801, end: 20071117
  2. CELEBREX [Concomitant]
     Route: 048

REACTIONS (2)
  - DRUG DOSE OMISSION [None]
  - MEMORY IMPAIRMENT [None]
